FAERS Safety Report 23289578 (Version 2)
Quarter: 2023Q4

REPORT INFORMATION
  Report Type: Spontaneous
  Country: FR (occurrence: FR)
  Receive Date: 20231212
  Receipt Date: 20231218
  Transmission Date: 20240109
  Serious: Yes (Death, Other)
  Sender: FDA-Public Use
  Company Number: FR-GILEAD-2023-0652446

PATIENT

DRUGS (1)
  1. TECARTUS [Suspect]
     Active Substance: BREXUCABTAGENE AUTOLEUCEL
     Indication: Burkitt^s lymphoma refractory
     Dosage: UNK
     Route: 042
     Dates: start: 20231122, end: 20231122

REACTIONS (5)
  - Cerebral thrombosis [Fatal]
  - Inflammation [Fatal]
  - Seizure [Fatal]
  - Immune effector cell-associated neurotoxicity syndrome [Fatal]
  - Off label use [Unknown]
